FAERS Safety Report 15673905 (Version 2)
Quarter: 2019Q4

REPORT INFORMATION
  Report Type: Spontaneous
  Country: US (occurrence: US)
  Receive Date: 20181129
  Receipt Date: 20191122
  Transmission Date: 20200122
  Serious: No
  Sender: FDA-Public Use
  Company Number: US-NATCO PHARMA-2018NAT00095

PATIENT
  Sex: Female
  Weight: 58.96 kg

DRUGS (3)
  1. MANY UNSPECIFIED MEDICATIONS [Concomitant]
  2. TRIHEXYPHENIDYL HYDROCHLORIDE. [Suspect]
     Active Substance: TRIHEXYPHENIDYL HYDROCHLORIDE
     Indication: PARKINSON^S DISEASE
     Dosage: 2 MG, 3X/DAY
     Route: 048
  3. LEVODOPA; CARBIDOPA [Concomitant]
     Dosage: 25/100 MG 4X/DAY

REACTIONS (4)
  - Dyspepsia [Not Recovered/Not Resolved]
  - Malaise [Not Recovered/Not Resolved]
  - Fatigue [Not Recovered/Not Resolved]
  - Nausea [Not Recovered/Not Resolved]
